FAERS Safety Report 5139479-9 (Version None)
Quarter: 2006Q4

REPORT INFORMATION
  Report Type: 
  Country: None (occurrence: None)
  Receive Date: 20061024
  Receipt Date: 20061013
  Transmission Date: 20070319
  Serious: Yes (Life-Threatening, Hospitalization, Disabling)
  Sender: FDA-Public Use
  Company Number: 2006110984

PATIENT
  Age: 67 Year
  Sex: Female

DRUGS (3)
  1. NORVASC [Suspect]
  2. ATENOLOL [Suspect]
  3. AZD2171 (AZD2171) [Suspect]
     Indication: CHRONIC LYMPHOCYTIC LEUKAEMIA
     Dosage: 45 MG, ORAL
     Route: 048
     Dates: start: 20060724, end: 20060818

REACTIONS (21)
  - ANOREXIA [None]
  - ASTHENIA [None]
  - BLOOD ALBUMIN DECREASED [None]
  - BLOOD THYROID STIMULATING HORMONE INCREASED [None]
  - BODY TEMPERATURE INCREASED [None]
  - CONFUSIONAL STATE [None]
  - DYSARTHRIA [None]
  - DYSPHONIA [None]
  - FACE OEDEMA [None]
  - FATIGUE [None]
  - HAEMOGLOBIN DECREASED [None]
  - HYPERTENSION [None]
  - HYPOALBUMINAEMIA [None]
  - HYPONATRAEMIA [None]
  - HYPOTHYROIDISM [None]
  - MUSCULAR WEAKNESS [None]
  - NAUSEA [None]
  - OEDEMA [None]
  - OEDEMA PERIPHERAL [None]
  - PLATELET COUNT DECREASED [None]
  - PROTEINURIA [None]
